FAERS Safety Report 16352672 (Version 1)
Quarter: 2019Q2

REPORT INFORMATION
  Report Type: Report from Study
  Country: TR (occurrence: TR)
  Receive Date: 20190524
  Receipt Date: 20190524
  Transmission Date: 20190711
  Serious: Yes (Death)
  Sender: FDA-Public Use
  Company Number: TR-TEVA-2019-TR-1055569

PATIENT

DRUGS (3)
  1. MESNA. [Suspect]
     Active Substance: MESNA
     Indication: LEIOMYOSARCOMA
     Dosage: 4 HOUR INFUSION ON DAYS 1-3, EVERY 21 DAYS
     Route: 041
  2. ADRIAMYCIN [Suspect]
     Active Substance: DOXORUBICIN HYDROCHLORIDE
     Indication: LEIOMYOSARCOMA
     Dosage: 2 HOUR INFUSION ON DAY 1, EVERY 21 DAYS
     Route: 041
  3. IFOSFAMIDE. [Suspect]
     Active Substance: IFOSFAMIDE
     Indication: LEIOMYOSARCOMA
     Dosage: ON DAYS 1-3, EVERY 21 DAYS
     Route: 041

REACTIONS (2)
  - Febrile neutropenia [Fatal]
  - Sepsis [Fatal]
